FAERS Safety Report 15669245 (Version 1)
Quarter: 2018Q4

REPORT INFORMATION
  Report Type: Spontaneous
  Country: BE (occurrence: BE)
  Receive Date: 20181129
  Receipt Date: 20181129
  Transmission Date: 20190205
  Serious: Yes (Hospitalization, Other)
  Sender: FDA-Public Use
  Company Number: BE-ACCORD-094039

PATIENT
  Age: 16 Year
  Sex: Male

DRUGS (9)
  1. IMMUNOGLOBULINS [Concomitant]
     Active Substance: IMMUNE GLOBULIN NOS
     Indication: ADENOVIRUS INFECTION
     Route: 042
  2. MYCOPHENOLIC ACID. [Concomitant]
     Active Substance: MYCOPHENOLIC ACID
     Indication: PROPHYLAXIS AGAINST GRAFT VERSUS HOST DISEASE
  3. GANCICLOVIR. [Suspect]
     Active Substance: GANCICLOVIR
     Indication: ADENOVIRUS INFECTION
  4. METHOTREXATE. [Concomitant]
     Active Substance: METHOTREXATE
     Indication: PROPHYLAXIS AGAINST GRAFT VERSUS HOST DISEASE
     Dosage: ON DAY 1
  5. SIROLIMUS. [Concomitant]
     Active Substance: SIROLIMUS
     Indication: PROPHYLAXIS AGAINST GRAFT VERSUS HOST DISEASE
     Dosage: KEPT WITHIN A SAFE THERAPEUTIC RANGE (6-12 NG/ML)
  6. METHOTREXATE. [Concomitant]
     Active Substance: METHOTREXATE
     Indication: PROPHYLAXIS AGAINST GRAFT VERSUS HOST DISEASE
     Dosage: DAYS 3, 6, AND 11
  7. TACROLIMUS. [Suspect]
     Active Substance: TACROLIMUS
     Indication: PROPHYLAXIS AGAINST GRAFT VERSUS HOST DISEASE
     Dosage: TARGET TROUGH LEVELS 5-10 NG/ML
  8. CIDOFOVIR. [Suspect]
     Active Substance: CIDOFOVIR
     Indication: ADENOVIRUS INFECTION
  9. METHYLPREDNISOLONE. [Concomitant]
     Active Substance: METHYLPREDNISOLONE
     Indication: ADENOVIRUS INFECTION

REACTIONS (6)
  - Hallucination [Unknown]
  - Extrapyramidal disorder [Unknown]
  - Facial paralysis [Recovered/Resolved]
  - Epilepsy [Unknown]
  - Blood brain barrier defect [Unknown]
  - Osmotic demyelination syndrome [Unknown]
